FAERS Safety Report 18151971 (Version 1)
Quarter: 2020Q3

REPORT INFORMATION
  Report Type: Spontaneous
  Country: US (occurrence: US)
  Receive Date: 20200814
  Receipt Date: 20200814
  Transmission Date: 20201103
  Serious: No
  Sender: FDA-Public Use
  Company Number: US-TEVA-2020-US-1814675

PATIENT
  Sex: Male

DRUGS (1)
  1. ELETRIPTAN HYDROBROMIDE TEVA [Suspect]
     Active Substance: ELETRIPTAN HYDROBROMIDE
     Indication: CLUSTER HEADACHE
     Dosage: 40MG BY MOUTH AT THE ONSET AND MAY REPEAT ONCE AFTER 2 HOURS NO MORE THAN 2 IN 24 HOURS
     Route: 048
     Dates: start: 202007

REACTIONS (4)
  - Product substitution issue [Unknown]
  - Therapeutic response decreased [Unknown]
  - Pruritus [Unknown]
  - Cluster headache [Unknown]

NARRATIVE: CASE EVENT DATE: 202007
